FAERS Safety Report 7368238-1 (Version None)
Quarter: 2011Q1

REPORT INFORMATION
  Report Type: 
  Country: None (occurrence: None)
  Receive Date: 20110323
  Receipt Date: 20110321
  Transmission Date: 20110831
  Serious: No
  Sender: FDA-Public Use
  Company Number: US-PFIZER INC-2007028718

PATIENT
  Sex: Female
  Weight: 86 kg

DRUGS (12)
  1. CHANTIX [Suspect]
     Dosage: 0.5 MG, 1X/DAY
     Route: 048
     Dates: start: 20070101, end: 20070101
  2. CHANTIX [Suspect]
     Dosage: 0.5 MG, 1X/DAY
     Dates: start: 20090101, end: 20090101
  3. GLIPIZIDE [Concomitant]
  4. ATENOLOL [Concomitant]
  5. VYTORIN [Concomitant]
  6. REGLAN [Concomitant]
  7. PRILOSEC [Concomitant]
  8. CYMBALTA [Concomitant]
  9. ACTOS [Concomitant]
  10. DARIFENACIN [Concomitant]
  11. SITAGLIPTIN [Concomitant]
  12. CHANTIX [Suspect]
     Indication: SMOKING CESSATION THERAPY
     Dosage: UNK
     Dates: start: 20070402

REACTIONS (5)
  - NAUSEA [None]
  - MALAISE [None]
  - DIZZINESS [None]
  - HEADACHE [None]
  - ABDOMINAL PAIN UPPER [None]
